FAERS Safety Report 21633123 (Version 1)
Quarter: 2022Q4

REPORT INFORMATION
  Report Type: Report from Study
  Country: US (occurrence: US)
  Receive Date: 20221123
  Receipt Date: 20221123
  Transmission Date: 20230113
  Serious: Yes (Hospitalization, Other)
  Sender: FDA-Public Use
  Company Number: US-BAXTER-2022BAX025079

PATIENT
  Age: 16 Year
  Sex: Male
  Weight: 67.2 kg

DRUGS (12)
  1. CYCLOPHOSPHAMIDE [Suspect]
     Active Substance: CYCLOPHOSPHAMIDE
     Indication: B precursor type acute leukaemia
     Dosage: 1760 MILLIGRAM, ONCE, FIRST DOSE AND 08NOV2022 LAST DOSE PRIOR TO SAE
     Route: 042
     Dates: start: 20221108
  2. VINCRISTINE [Suspect]
     Active Substance: VINCRISTINE
     Indication: B precursor type acute leukaemia
     Dosage: 2 MILLIGRAM, FIRST DOSE
     Route: 042
     Dates: start: 20221025
  3. METHOTREXATE [Suspect]
     Active Substance: METHOTREXATE
     Indication: B precursor type acute leukaemia
     Dosage: 15 MILLIGRAM, ONCE, FIRST DOSE
     Route: 037
     Dates: start: 20221011
  4. METHOTREXATE [Suspect]
     Active Substance: METHOTREXATE
     Dosage: 15 MILLIGRAM, ONCE, LAST DOSE PRIOR TO SAE
     Route: 037
     Dates: start: 20221101, end: 20221101
  5. PEGASPARGASE [Suspect]
     Active Substance: PEGASPARGASE
     Indication: B precursor type acute leukaemia
     Dosage: 4425 INTERNATIONAL UNIT (IU)/M2, FIRST DOSE
     Route: 042
     Dates: start: 20221025
  6. MERCAPTOPURINE [Suspect]
     Active Substance: MERCAPTOPURINE
     Indication: B precursor type acute leukaemia
     Dosage: 106 MILLIGRAM, QD, FIRST DOSE AND LAST DOSE PRIOR TO SAE
     Route: 048
     Dates: start: 20221108, end: 20221108
  7. MERCAPTOPURINE [Suspect]
     Active Substance: MERCAPTOPURINE
     Dosage: 106 MILLIGRAM, QD
     Route: 048
     Dates: start: 20221110
  8. CYTARABINE [Suspect]
     Active Substance: CYTARABINE
     Indication: B precursor type acute leukaemia
     Dosage: 132 MILLIGRAM/SQ. METER, DAILY X 4 DAYS, FIRST DOSE
     Route: 042
     Dates: start: 20221108, end: 20221109
  9. CYTARABINE [Suspect]
     Active Substance: CYTARABINE
     Dosage: 132 MILLIGRAM/SQ. METER, DAILY X 4 DAYS, LAST DOSE PRIOR TO SAE
     Route: 042
     Dates: start: 20221108, end: 20221108
  10. RUXOLITINIB [Suspect]
     Active Substance: RUXOLITINIB
     Indication: B precursor type acute leukaemia
     Dosage: 90MG BID, FIRST DOSE (DRUG NAME ALSO REPORTED AS INCB018424)
     Route: 048
     Dates: start: 20221011, end: 20221109
  11. RUXOLITINIB [Suspect]
     Active Substance: RUXOLITINIB
     Dosage: 90MG BID, LAST DOSE PRIOR TO SAE
     Route: 048
     Dates: start: 20221108, end: 20221108
  12. RUXOLITINIB [Suspect]
     Active Substance: RUXOLITINIB
     Dosage: 90MG BID
     Route: 048
     Dates: start: 20221110

REACTIONS (1)
  - Leukoencephalopathy [Recovering/Resolving]

NARRATIVE: CASE EVENT DATE: 20221108
